FAERS Safety Report 10246499 (Version 1)
Quarter: 2014Q2

REPORT INFORMATION
  Report Type: Spontaneous
  Country: US (occurrence: US)
  Receive Date: 20140619
  Receipt Date: 20140619
  Transmission Date: 20141212
  Serious: Yes (Other)
  Sender: FDA-Public Use
  Company Number: US-009507513-1406USA004131

PATIENT
  Sex: 0

DRUGS (7)
  1. TEMODAR [Suspect]
     Indication: OSTEOSARCOMA
     Dosage: UNK
  2. METHOTREXATE [Suspect]
     Indication: OSTEOSARCOMA
     Dosage: UNK
  3. DOXORUBICIN [Suspect]
     Indication: OSTEOSARCOMA
  4. CISPLATIN [Suspect]
     Indication: OSTEOSARCOMA
  5. THERAPEUTIC RADIOPHARMACEUTICAL (UNSPECIFIED) [Suspect]
     Indication: OSTEOSARCOMA
  6. IFOSFAMIDE [Suspect]
     Indication: OSTEOSARCOMA
  7. ETOPOSIDE [Suspect]
     Indication: OSTEOSARCOMA

REACTIONS (1)
  - Bone giant cell tumour malignant [Not Recovered/Not Resolved]
